FAERS Safety Report 8847666 (Version 1)
Quarter: 2012Q4

REPORT INFORMATION
  Report Type: 
  Country: US (occurrence: US)
  Receive Date: 20121018
  Receipt Date: 20121018
  Transmission Date: 20130627
  Serious: Yes (Other)
  Sender: FDA-Public Use
  Company Number: US-009507513-2011SP018647

PATIENT
  Age: 60 None
  Sex: Female

DRUGS (1)
  1. DR. SCHOLL^S FREEZE AWAY COMMON + PLANTAR WART REMOVER [Suspect]
     Indication: MELANOCYTIC NAEVUS
     Dates: start: 2011

REACTIONS (10)
  - Device malfunction [Unknown]
  - Burns second degree [Recovered/Resolved]
  - Skin exfoliation [Recovered/Resolved]
  - Abdominal pain upper [Not Recovered/Not Resolved]
  - Scar [Not Recovered/Not Resolved]
  - Ulcer [Recovered/Resolved]
  - Off label use [Unknown]
  - Medication error [Unknown]
  - Drug administration error [Unknown]
  - Off label use [Unknown]
